FAERS Safety Report 5860981-6 (Version None)
Quarter: 2008Q3

REPORT INFORMATION
  Report Type: 
  Country: None (occurrence: None)
  Receive Date: 20080827
  Receipt Date: 20080117
  Transmission Date: 20090109
  Serious: No
  Sender: FDA-Public Use
  Company Number: US-ABBOTT-08P-163-0433966-00

PATIENT
  Age: 84 Year
  Sex: Female
  Weight: 64.468 kg

DRUGS (3)
  1. NIASPAN [Suspect]
     Indication: BLOOD CHOLESTEROL INCREASED
     Route: 048
     Dates: start: 20080114
  2. AMLODIPINE [Concomitant]
     Indication: HYPERTENSION
  3. ACETYLSALICYLIC ACID SRT [Concomitant]
     Indication: ANTICOAGULANT THERAPY

REACTIONS (2)
  - EPISTAXIS [None]
  - FLUSHING [None]
